FAERS Safety Report 22107444 (Version 1)
Quarter: 2023Q1

REPORT INFORMATION
  Report Type: Report from Study
  Country: US (occurrence: US)
  Receive Date: 20230317
  Receipt Date: 20230317
  Transmission Date: 20230418
  Serious: Yes (Other)
  Sender: FDA-Public Use
  Company Number: US-ACADIA PHARMACEUTICALS INC.-ACA-2023-PIM-000971

PATIENT
  Sex: Male

DRUGS (1)
  1. NUPLAZID [Suspect]
     Active Substance: PIMAVANSERIN TARTRATE
     Dosage: UNKNOWN DOSE AND FREQUENCY
     Route: 048

REACTIONS (4)
  - Facial bones fracture [Not Recovered/Not Resolved]
  - Wrist fracture [Not Recovered/Not Resolved]
  - Product dose omission issue [Not Recovered/Not Resolved]
  - Fall [Recovered/Resolved]
